FAERS Safety Report 14164863 (Version 3)
Quarter: 2018Q3

REPORT INFORMATION
  Report Type: Report from Study
  Country: MX (occurrence: MX)
  Receive Date: 20171107
  Receipt Date: 20180801
  Transmission Date: 20181010
  Serious: Yes (Hospitalization, Other)
  Sender: FDA-Public Use
  Company Number: PHHY2017MX163407

PATIENT
  Age: 53 Year
  Sex: Female
  Weight: 78 kg

DRUGS (11)
  1. OMEPRAZOLE. [Concomitant]
     Active Substance: OMEPRAZOLE
     Indication: COLITIS
     Dosage: 1 DF, Q12H (DISCONTINUED ONE MONTH AGO)
     Route: 048
     Dates: start: 2016
  2. TRILEPTAL [Suspect]
     Active Substance: OXCARBAZEPINE
     Indication: EPILEPSY
     Dosage: 1 DF, QD (STARTED 7 YEARS AGO)
     Route: 048
     Dates: start: 2011
  3. OMEPRAZOLE. [Concomitant]
     Active Substance: OMEPRAZOLE
     Indication: GASTROINTESTINAL DISORDER
  4. DIMOFLAX [Concomitant]
     Indication: GASTROINTESTINAL DISORDER
     Dosage: 1 DF, BEFORE EVERY MEAL (FROM 1 MONTH AGO)
     Route: 048
  5. SINERGIX [Concomitant]
     Indication: PAIN
     Dosage: 1 DF, QD (STARTED ONE MONTH AGO)
     Route: 048
  6. CELEBREX [Concomitant]
     Active Substance: CELECOXIB
     Indication: ARTHROPATHY
     Dosage: 1 DF, Q12H (STARTED ONE MONTH AGO)
     Route: 048
  7. CLONAZEPAM. [Concomitant]
     Active Substance: CLONAZEPAM
     Indication: SLEEP DISORDER
     Dosage: 0.5 DF, QN (1/2 TABLET OR 7 DROPS) (FROM 7 YEARS AGO)
     Route: 048
  8. GILENYA [Suspect]
     Active Substance: FINGOLIMOD HYDROCHLORIDE
     Dosage: 0.5 MG, (3 TIMES PER WEEK), UNK
     Route: 065
  9. GILENYA [Suspect]
     Active Substance: FINGOLIMOD HYDROCHLORIDE
     Indication: MULTIPLE SCLEROSIS
     Dosage: UNK UNK, QD
     Route: 065
  10. UNIVAL [Concomitant]
     Indication: GASTROINTESTINAL DISORDER
     Dosage: 1 DF, BEFORE EVERY MEAL (FROM ONE MONTH AGO)
     Route: 048
  11. BETAFERON [Concomitant]
     Active Substance: INTERFERON BETA-1B
     Indication: MULTIPLE SCLEROSIS
     Dosage: UNK
     Route: 065
     Dates: start: 201211

REACTIONS (14)
  - Carotid artery thrombosis [Recovered/Resolved]
  - Blood potassium decreased [Unknown]
  - Multiple sclerosis [Unknown]
  - Varicose vein [Unknown]
  - Platelet count decreased [Recovered/Resolved]
  - Gastritis [Not Recovered/Not Resolved]
  - Liver injury [Recovering/Resolving]
  - Poor peripheral circulation [Not Recovered/Not Resolved]
  - Renal disorder [Recovered/Resolved]
  - Decreased immune responsiveness [Not Recovered/Not Resolved]
  - Insomnia [Not Recovered/Not Resolved]
  - Carotid arteriosclerosis [Unknown]
  - Colitis [Not Recovered/Not Resolved]
  - Prescribed underdose [Not Recovered/Not Resolved]

NARRATIVE: CASE EVENT DATE: 2011
